FAERS Safety Report 6974735-0 (Version None)
Quarter: 2010Q3

REPORT INFORMATION
  Report Type: 
  Country: None (occurrence: None)
  Receive Date: 20100909
  Receipt Date: 20090126
  Transmission Date: 20110219
  Serious: No
  Sender: FDA-Public Use
  Company Number: US-WYE-H07119608

PATIENT
  Sex: Female

DRUGS (4)
  1. PRISTIQ [Suspect]
     Indication: ENERGY INCREASED
     Route: 048
     Dates: start: 20080620, end: 20081117
  2. PRISTIQ [Suspect]
     Indication: DEPRESSION
  3. BUPROPION HCL [Concomitant]
  4. LITHIUM CARBONATE [Concomitant]

REACTIONS (3)
  - DEPRESSION [None]
  - FEELING ABNORMAL [None]
  - IRRITABILITY [None]
